FAERS Safety Report 7064054-9 (Version None)
Quarter: 2010Q4

REPORT INFORMATION
  Report Type: 
  Country: None (occurrence: None)
  Receive Date: 20101027
  Receipt Date: 20101013
  Transmission Date: 20110411
  Serious: Yes (Other)
  Sender: FDA-Public Use
  Company Number: US-AMGEN-USASP2010000362

PATIENT

DRUGS (1)
  1. NPLATE [Suspect]
     Dates: start: 20090310, end: 20100603

REACTIONS (1)
  - SYSTEMIC LUPUS ERYTHEMATOSUS [None]
